FAERS Safety Report 8301106-7 (Version None)
Quarter: 2012Q2

REPORT INFORMATION
  Report Type: 
  Country: None (occurrence: None)
  Receive Date: 20120420
  Receipt Date: 20120410
  Transmission Date: 20120825
  Serious: Yes (Other)
  Sender: FDA-Public Use
  Company Number: BR-JNJFOC-20120405532

PATIENT
  Age: 32 Year
  Sex: Male
  Weight: 78 kg

DRUGS (12)
  1. AKINETON [Suspect]
     Indication: PSYCHOTIC DISORDER
     Route: 048
     Dates: start: 20090101
  2. PHENERGAN [Suspect]
     Indication: PRODUCT USED FOR UNKNOWN INDICATION
     Route: 065
  3. CLONAZEPAM [Suspect]
     Indication: EPILEPSY
     Route: 048
     Dates: start: 20090101
  4. LITHIUM CARBONATE [Suspect]
     Indication: PRODUCT USED FOR UNKNOWN INDICATION
     Route: 065
     Dates: end: 20090101
  5. HALDOL [Suspect]
     Indication: SCHIZOAFFECTIVE DISORDER
     Route: 065
     Dates: start: 20120331
  6. HALDOL [Suspect]
     Route: 065
     Dates: start: 20120216
  7. ALCOHOL [Suspect]
     Indication: INFLUENZA
     Route: 065
  8. HALDOL [Suspect]
     Indication: PRODUCT USED FOR UNKNOWN INDICATION
     Route: 048
     Dates: start: 19990101
  9. HALDOL [Suspect]
     Route: 048
     Dates: start: 20120216
  10. HALDOL [Suspect]
     Route: 065
     Dates: start: 20120310
  11. FLUTICASONE PROPIONATE/SALMETEROL [Suspect]
     Indication: DYSPNOEA
     Route: 065
  12. DIAZEPAM [Suspect]
     Indication: PRODUCT USED FOR UNKNOWN INDICATION
     Route: 065

REACTIONS (15)
  - INFLUENZA [None]
  - FEELING JITTERY [None]
  - SOMNOLENCE [None]
  - DRY MOUTH [None]
  - SUICIDAL IDEATION [None]
  - WITHDRAWAL SYNDROME [None]
  - APATHY [None]
  - AGITATION [None]
  - FEELING COLD [None]
  - VOMITING [None]
  - CONVULSION [None]
  - DYSPNOEA [None]
  - DIZZINESS [None]
  - COMPULSIONS [None]
  - ASTHENIA [None]
